FAERS Safety Report 9465542 (Version 1)
Quarter: 2013Q3

REPORT INFORMATION
  Report Type: Spontaneous
  Country: US (occurrence: US)
  Receive Date: 20130820
  Receipt Date: 20130820
  Transmission Date: 20140515
  Serious: No
  Sender: FDA-Public Use
  Company Number: US-TEVA-426795USA

PATIENT
  Sex: Male

DRUGS (2)
  1. NUVIGIL [Suspect]
     Indication: BIPOLAR DISORDER
     Route: 048
     Dates: start: 201307
  2. MARIJUANA [Concomitant]

REACTIONS (2)
  - Hallucination, auditory [Unknown]
  - Off label use [Recovered/Resolved]
